FAERS Safety Report 10052384 (Version 1)
Quarter: 2014Q2

REPORT INFORMATION
  Report Type: Spontaneous
  Country: US (occurrence: None)
  Receive Date: 20140401
  Receipt Date: 20140401
  Transmission Date: 20141212
  Serious: No
  Sender: FDA-Public Use
  Company Number: None

PATIENT
  Age: 63 Year
  Sex: Female

DRUGS (1)
  1. MIRVASO [Suspect]
     Dosage: APPLY EACH DAY OR AS NEEDED

REACTIONS (3)
  - Inflammation [None]
  - Thermal burn [None]
  - Drug dependence [None]
